FAERS Safety Report 20167217 (Version 1)
Quarter: 2021Q4

REPORT INFORMATION
  Report Type: Spontaneous
  Country: GB (occurrence: GB)
  Receive Date: 20211209
  Receipt Date: 20211209
  Transmission Date: 20220304
  Serious: Yes (Hospitalization)
  Sender: FDA-Public Use
  Company Number: None

PATIENT
  Age: 75 Year
  Sex: Female
  Weight: 103 kg

DRUGS (18)
  1. INSULIN HUMAN [Suspect]
     Active Substance: INSULIN HUMAN
     Indication: Product used for unknown indication
     Dosage: 100UNITS/ML 3ML INJECT THE APPROPRIATE NUMBER OF UNITS AS INSTR...
     Route: 065
     Dates: start: 20210930
  2. UMECLIDINIUM BROMIDE\VILANTEROL TRIFENATATE [Concomitant]
     Active Substance: UMECLIDINIUM BROMIDE\VILANTEROL TRIFENATATE
     Dosage: (AMBER 3) (UMECLIDINIUM 65 MICROGRAMS AND VILAN...
     Route: 065
     Dates: start: 20210803, end: 20210824
  3. ATORVASTATIN [Concomitant]
     Active Substance: ATORVASTATIN
     Dosage: 1 DOSAGE FORM, DAILY
     Route: 065
     Dates: start: 20210404
  4. CHLORPHENIRAMINE MALEATE [Concomitant]
     Active Substance: CHLORPHENIRAMINE MALEATE
     Indication: Pruritus
     Dosage: EVERY 4-6 HRS IF REQUIRED
     Dates: start: 20211022, end: 20211029
  5. DABIGATRAN ETEXILATE [Concomitant]
     Active Substance: DABIGATRAN ETEXILATE
     Dosage: UNK, BID
     Route: 065
     Dates: start: 20210404
  6. DIGOXIN [Concomitant]
     Active Substance: DIGOXIN
     Dosage: 1 DOSAGE FORM, DAILY
     Route: 065
     Dates: start: 20210404
  7. DOXAZOSIN [Concomitant]
     Active Substance: DOXAZOSIN MESYLATE
     Dosage: 2 DOSAGE FORM, DAILY
     Route: 065
     Dates: start: 20210404
  8. FUROSEMIDE [Concomitant]
     Active Substance: FUROSEMIDE
     Dosage: 1 DOSAGE FORM, EACH MORNING
     Route: 065
     Dates: start: 20210404
  9. GLICLAZIDE [Concomitant]
     Active Substance: GLICLAZIDE
     Dosage: 2 DOSAGE FORM, BID
     Route: 065
     Dates: start: 20210404, end: 20210930
  10. HUMULIN L [Concomitant]
     Active Substance: INSULIN HUMAN
     Dosage: INJECT THE APPROPRIATE NUMBER OF UNITS AS INSTR...
     Route: 065
     Dates: start: 20210722, end: 20210930
  11. IRBESARTAN [Concomitant]
     Active Substance: IRBESARTAN
     Dosage: 1 DOSAGE FORM, DAILY
     Route: 065
     Dates: start: 20210404
  12. LINAGLIPTIN [Concomitant]
     Active Substance: LINAGLIPTIN
     Dosage: TAKE ONE TABLET WITH BREAKFAST
     Route: 065
     Dates: start: 20210404
  13. INSULIN ASPART [Concomitant]
     Active Substance: INSULIN ASPART
     Dosage: USE AS DIRECTED
     Route: 065
     Dates: start: 20211103
  14. OMEPRAZOLE [Concomitant]
     Active Substance: OMEPRAZOLE
     Indication: Dyspepsia
     Dosage: AS DIRECTED
     Route: 065
     Dates: start: 20210921
  15. ALBUTEROL [Concomitant]
     Active Substance: ALBUTEROL
     Dosage: AS NEEDED
     Route: 055
     Dates: start: 20210404
  16. SOTALOL [Concomitant]
     Active Substance: SOTALOL
     Dosage: 1 DOSAGE FORM, BID
     Route: 065
     Dates: start: 20210404
  17. SPIRONOLACTONE [Concomitant]
     Active Substance: SPIRONOLACTONE
     Dosage: 1 DOSAGE FORM, EACH MORNING
     Route: 065
     Dates: start: 20210722
  18. TRELEGY ELLIPTA [Concomitant]
     Active Substance: FLUTICASONE FUROATE\UMECLIDINIUM BROMIDE\VILANTEROL TRIFENATATE
     Dosage: 1 DOSAGE FORM, DAILY
     Route: 055
     Dates: start: 20210824

REACTIONS (2)
  - Rash [Recovering/Resolving]
  - Pruritus [Unknown]

NARRATIVE: CASE EVENT DATE: 20211104
